FAERS Safety Report 10600937 (Version 2)
Quarter: 2014Q4

REPORT INFORMATION
  Report Type: Spontaneous
  Country: FR (occurrence: FR)
  Receive Date: 20141124
  Receipt Date: 20141124
  Transmission Date: 20150529
  Serious: Yes (Death, Hospitalization, Other)
  Sender: FDA-Public Use
  Company Number: FR-AMGEN-FRASP2014068705

PATIENT
  Age: 66 Year
  Sex: Male
  Weight: 68 kg

DRUGS (1)
  1. ENBREL [Suspect]
     Active Substance: ETANERCEPT
     Indication: RHEUMATOID ARTHRITIS
     Dosage: 50 MG, WEEKLY
     Route: 058
     Dates: start: 20130801, end: 20140213

REACTIONS (5)
  - Pleurisy [Unknown]
  - Aspergillus infection [Unknown]
  - Liver abscess [Unknown]
  - Death [Fatal]
  - Pneumothorax [Unknown]

NARRATIVE: CASE EVENT DATE: 20140213
